APPROVED DRUG PRODUCT: BARICITINIB
Active Ingredient: BARICITINIB
Strength: 2MG
Dosage Form/Route: TABLET;ORAL
Application: A217542 | Product #002
Applicant: AUROBINDO PHARMA LTD
Approved: Jul 22, 2024 | RLD: No | RS: No | Type: DISCN